FAERS Safety Report 23297143 (Version 2)
Quarter: 2024Q1

REPORT INFORMATION
  Report Type: Report from Study
  Country: CN (occurrence: CN)
  Receive Date: 20231214
  Receipt Date: 20240303
  Transmission Date: 20240410
  Serious: Yes (Hospitalization, Other)
  Sender: FDA-Public Use
  Company Number: CN-JNJFOC-20230447794

PATIENT
  Age: 73 Year
  Sex: Male
  Weight: 75 kg

DRUGS (42)
  1. DARATUMUMAB [Suspect]
     Active Substance: DARATUMUMAB
     Indication: Plasma cell myeloma
     Route: 042
     Dates: start: 20210401
  2. DARATUMUMAB [Suspect]
     Active Substance: DARATUMUMAB
     Route: 042
     Dates: start: 20221209, end: 20221209
  3. DARATUMUMAB [Suspect]
     Active Substance: DARATUMUMAB
     Dosage: 400 MG, 720 MG
     Route: 042
     Dates: start: 20210401
  4. DARATUMUMAB [Suspect]
     Active Substance: DARATUMUMAB
     Route: 042
     Dates: start: 20210408
  5. DARATUMUMAB [Suspect]
     Active Substance: DARATUMUMAB
     Route: 042
     Dates: start: 20210409
  6. DARATUMUMAB [Suspect]
     Active Substance: DARATUMUMAB
     Route: 042
     Dates: start: 20210415
  7. DARATUMUMAB [Suspect]
     Active Substance: DARATUMUMAB
     Route: 042
     Dates: start: 20210416
  8. DARATUMUMAB [Suspect]
     Active Substance: DARATUMUMAB
     Route: 042
     Dates: start: 20210422
  9. DARATUMUMAB [Suspect]
     Active Substance: DARATUMUMAB
     Route: 042
     Dates: start: 20210423
  10. DARATUMUMAB [Suspect]
     Active Substance: DARATUMUMAB
     Route: 042
     Dates: start: 20220304
  11. DARATUMUMAB [Suspect]
     Active Substance: DARATUMUMAB
     Route: 042
     Dates: start: 20220514
  12. DARATUMUMAB [Suspect]
     Active Substance: DARATUMUMAB
     Route: 042
     Dates: start: 20220617
  13. DARATUMUMAB [Suspect]
     Active Substance: DARATUMUMAB
     Route: 042
     Dates: start: 20220722
  14. DARATUMUMAB [Suspect]
     Active Substance: DARATUMUMAB
     Route: 042
     Dates: start: 20220826
  15. DARATUMUMAB [Suspect]
     Active Substance: DARATUMUMAB
     Route: 042
     Dates: start: 20220929
  16. DARATUMUMAB [Suspect]
     Active Substance: DARATUMUMAB
     Route: 042
     Dates: start: 20221104
  17. DARATUMUMAB [Suspect]
     Active Substance: DARATUMUMAB
     Route: 042
     Dates: start: 20211129
  18. DARATUMUMAB [Suspect]
     Active Substance: DARATUMUMAB
     Route: 042
     Dates: start: 20210507
  19. DARATUMUMAB [Suspect]
     Active Substance: DARATUMUMAB
     Route: 042
     Dates: start: 20210508
  20. DARATUMUMAB [Suspect]
     Active Substance: DARATUMUMAB
     Route: 042
     Dates: start: 20210514
  21. DARATUMUMAB [Suspect]
     Active Substance: DARATUMUMAB
     Route: 042
     Dates: start: 20210515
  22. DARATUMUMAB [Suspect]
     Active Substance: DARATUMUMAB
     Route: 042
     Dates: start: 20210521
  23. DARATUMUMAB [Suspect]
     Active Substance: DARATUMUMAB
     Route: 042
     Dates: start: 20210522
  24. DARATUMUMAB [Suspect]
     Active Substance: DARATUMUMAB
     Route: 042
     Dates: start: 20210528
  25. DARATUMUMAB [Suspect]
     Active Substance: DARATUMUMAB
     Route: 042
     Dates: start: 20210529
  26. DARATUMUMAB [Suspect]
     Active Substance: DARATUMUMAB
     Route: 042
     Dates: start: 20220408
  27. DARATUMUMAB [Suspect]
     Active Substance: DARATUMUMAB
     Route: 042
     Dates: start: 20220514
  28. DARATUMUMAB [Suspect]
     Active Substance: DARATUMUMAB
     Route: 042
     Dates: start: 20210607
  29. DARATUMUMAB [Suspect]
     Active Substance: DARATUMUMAB
     Route: 042
     Dates: start: 20210608
  30. DARATUMUMAB [Suspect]
     Active Substance: DARATUMUMAB
     Route: 042
     Dates: start: 20210621
  31. DARATUMUMAB [Suspect]
     Active Substance: DARATUMUMAB
     Route: 042
     Dates: start: 20210622
  32. DARATUMUMAB [Suspect]
     Active Substance: DARATUMUMAB
     Route: 042
     Dates: start: 20210712
  33. DARATUMUMAB [Suspect]
     Active Substance: DARATUMUMAB
     Route: 042
     Dates: start: 20210713
  34. DARATUMUMAB [Suspect]
     Active Substance: DARATUMUMAB
     Route: 042
     Dates: start: 20210726
  35. DARATUMUMAB [Suspect]
     Active Substance: DARATUMUMAB
     Route: 042
     Dates: start: 20210727
  36. DARATUMUMAB [Suspect]
     Active Substance: DARATUMUMAB
     Route: 042
     Dates: start: 20210830
  37. DARATUMUMAB [Suspect]
     Active Substance: DARATUMUMAB
     Route: 042
     Dates: start: 20210816
  38. DARATUMUMAB [Suspect]
     Active Substance: DARATUMUMAB
     Route: 042
     Dates: start: 20210915
  39. DARATUMUMAB [Suspect]
     Active Substance: DARATUMUMAB
     Route: 042
     Dates: start: 20211001
  40. DARATUMUMAB [Suspect]
     Active Substance: DARATUMUMAB
     Route: 042
     Dates: start: 20220121
  41. DARATUMUMAB [Suspect]
     Active Substance: DARATUMUMAB
     Route: 042
     Dates: start: 20211019
  42. DARATUMUMAB [Suspect]
     Active Substance: DARATUMUMAB
     Route: 042
     Dates: start: 20211129

REACTIONS (2)
  - Pneumonia [Recovering/Resolving]
  - Hypokalaemia [Unknown]

NARRATIVE: CASE EVENT DATE: 20230102
